FAERS Safety Report 9678980 (Version 1)
Quarter: 2013Q4

REPORT INFORMATION
  Report Type: Spontaneous
  Country: NL (occurrence: NL)
  Receive Date: 20131108
  Receipt Date: 20131108
  Transmission Date: 20140711
  Serious: Yes (Life-Threatening)
  Sender: FDA-Public Use
  Company Number: NL-ASTRAZENECA-2013SE82075

PATIENT
  Age: 28166 Day
  Sex: Female
  Weight: 80 kg

DRUGS (5)
  1. OMEPRAZOL [Suspect]
     Indication: PROPHYLAXIS AGAINST GASTROINTESTINAL ULCER
     Route: 048
     Dates: start: 20130905, end: 20131027
  2. AMLODIPINE [Concomitant]
     Route: 048
     Dates: start: 2008
  3. LISINOPRIL/HYDROCHLOORTHIAZIDE [Concomitant]
     Dosage: 1 DF DAILY  / 20+12,5MG
     Route: 048
     Dates: start: 2000
  4. PRAVASTATINE [Concomitant]
     Route: 048
     Dates: start: 1995
  5. DICLOFENAC-NATRIUM [Concomitant]
     Route: 048
     Dates: start: 20130905, end: 20131026

REACTIONS (5)
  - Blood pressure increased [Recovering/Resolving]
  - Body temperature decreased [Recovering/Resolving]
  - Muscle spasms [Recovering/Resolving]
  - Blood glucose fluctuation [Recovering/Resolving]
  - Hypersensitivity [Recovering/Resolving]
